FAERS Safety Report 11025422 (Version 1)
Quarter: 2015Q2

REPORT INFORMATION
  Report Type: Spontaneous
  Country: US (occurrence: US)
  Receive Date: 20150414
  Receipt Date: 20150414
  Transmission Date: 20150821
  Serious: Yes (Death, Hospitalization)
  Sender: FDA-Public Use
  Company Number: PHHY2015US040601

PATIENT
  Age: 52 Year
  Sex: Female

DRUGS (2)
  1. ANASTROZOL [Concomitant]
     Active Substance: ANASTROZOLE
     Indication: BREAST CANCER METASTATIC
     Route: 065
  2. PACLITAXEL. [Suspect]
     Active Substance: PACLITAXEL
     Indication: BREAST CANCER METASTATIC
     Dosage: 80 MG/M2, UNK
     Route: 065

REACTIONS (22)
  - Hyperkalaemia [Unknown]
  - Rhabdomyolysis [Unknown]
  - Liver injury [Unknown]
  - Blood lactate dehydrogenase increased [Unknown]
  - Blood uric acid increased [Unknown]
  - Confusional state [Unknown]
  - Hypotension [Unknown]
  - Metabolic encephalopathy [Unknown]
  - Sluggishness [Unknown]
  - Somnolence [Unknown]
  - Hyperphosphataemia [Unknown]
  - Hepatic enzyme increased [Unknown]
  - Acute kidney injury [Unknown]
  - Oliguria [Unknown]
  - Hypercapnia [Unknown]
  - Hyperuricaemia [Unknown]
  - Renal impairment [Unknown]
  - Cardiopulmonary failure [Fatal]
  - Tumour lysis syndrome [Unknown]
  - Bradypnoea [Unknown]
  - Electrolyte imbalance [Unknown]
  - Dyspnoea [Unknown]
